FAERS Safety Report 4580475-8 (Version None)
Quarter: 2005Q1

REPORT INFORMATION
  Report Type: 
  Country: None (occurrence: None)
  Receive Date: 20050214
  Receipt Date: 20040203
  Transmission Date: 20050727
  Serious: Yes (Other)
  Sender: FDA-Public Use
  Company Number: US-GLAXOSMITHKLINE-A0496511A

PATIENT
  Age: 30 Year
  Sex: Female
  Weight: 59.1 kg

DRUGS (2)
  1. LAMICTAL [Suspect]
     Indication: ILL-DEFINED DISORDER
     Route: 048
     Dates: start: 20030523, end: 20031209
  2. XANAX [Concomitant]
     Dosage: 1MG PER DAY
     Route: 048
     Dates: start: 20020101

REACTIONS (2)
  - RASH PRURITIC [None]
  - STEVENS-JOHNSON SYNDROME [None]
